FAERS Safety Report 4798036-4 (Version None)
Quarter: 2005Q3

REPORT INFORMATION
  Report Type: 
  Country: None (occurrence: None)
  Receive Date: 20050929
  Receipt Date: 20050816
  Transmission Date: 20060218
  Serious: No
  Sender: FDA-Public Use
  Company Number: 05P-163-0308531

PATIENT
  Age: 68 Year
  Sex: Male
  Weight: 88.4514 kg

DRUGS (6)
  1. HUMIRA [Suspect]
     Indication: RHEUMATOID ARTHRITIS
     Dosage: 40 MG, 1 IN 2 WK, SUBCUTANEOUS
     Route: 058
     Dates: start: 20030101
  2. FLOMAX [Concomitant]
  3. FOLIC ACID [Concomitant]
  4. SELENIUM SULFIDE [Concomitant]
  5. LINSEED OIL [Concomitant]
  6. ESOMEPRAZOLE [Concomitant]

REACTIONS (2)
  - LEUKOPLAKIA ORAL [None]
  - NIGHT SWEATS [None]
